FAERS Safety Report 4335903-X (Version None)
Quarter: 2004Q2

REPORT INFORMATION
  Report Type: 
  Country: None (occurrence: None)
  Receive Date: 20040406
  Receipt Date: 20040324
  Transmission Date: 20050107
  Serious: Yes (Other)
  Sender: FDA-Public Use
  Company Number: 2004020686

PATIENT
  Age: 75 Year
  Sex: Male

DRUGS (1)
  1. DOXAZOSIN MESLYLATE [Suspect]
     Indication: BENIGN PROSTATIC HYPERPLASIA
     Dosage: 4 MG (DAILY), ORAL
     Route: 048
     Dates: start: 20020401

REACTIONS (1)
  - PROSTATE CANCER [None]
